FAERS Safety Report 4344833-9 (Version None)
Quarter: 2004Q2

REPORT INFORMATION
  Report Type: 
  Country: None (occurrence: None)
  Receive Date: 20040420
  Receipt Date: 20040402
  Transmission Date: 20050107
  Serious: Yes (Other)
  Sender: FDA-Public Use
  Company Number: US012976

PATIENT
  Age: 17 Month

DRUGS (1)
  1. ACTIQ [Suspect]
     Dosage: 200 UG ONCE BUCCAL
     Route: 002
     Dates: start: 20020707, end: 20020707

REACTIONS (2)
  - ACCIDENTAL EXPOSURE [None]
  - NASAL DISCOMFORT [None]
